FAERS Safety Report 16074948 (Version 1)
Quarter: 2019Q1

REPORT INFORMATION
  Report Type: Report from Study
  Country: US (occurrence: US)
  Receive Date: 20190314
  Receipt Date: 20190314
  Transmission Date: 20190418
  Serious: Yes (Other)
  Sender: FDA-Public Use
  Company Number: US-ROCHE-2281573

PATIENT
  Age: 63 Year
  Sex: Male
  Weight: 103.4 kg

DRUGS (2)
  1. OBINUTUZUMAB. [Suspect]
     Active Substance: OBINUTUZUMAB
     Indication: B-CELL LYMPHOMA REFRACTORY
     Dosage: ON DAY 1?LAST DOSES ADMINISTERED ON 26/FEB/2019 AND 06/MAR/2019
     Route: 042
     Dates: start: 20190109
  2. LENALIDOMIDE [Suspect]
     Active Substance: LENALIDOMIDE
     Indication: B-CELL LYMPHOMA REFRACTORY
     Dosage: ON DAYS 1-21?LAST DOSE ADMINISTERED 06/FEB/2019
     Route: 048
     Dates: start: 20190109

REACTIONS (1)
  - Lymphocyte count decreased [Not Recovered/Not Resolved]

NARRATIVE: CASE EVENT DATE: 20190306
